FAERS Safety Report 8005597-0 (Version None)
Quarter: 2011Q4

REPORT INFORMATION
  Report Type: 
  Country: None (occurrence: None)
  Receive Date: 20111223
  Receipt Date: 20111216
  Transmission Date: 20120403
  Serious: Yes (Other)
  Sender: FDA-Public Use
  Company Number: SE-JNJFOC-20111209505

PATIENT
  Sex: Female

DRUGS (2)
  1. PALEXIA [Suspect]
     Indication: PRODUCT USED FOR UNKNOWN INDICATION
     Route: 048
  2. HERACILLIN [Concomitant]
     Indication: SPONDYLITIS
     Route: 065

REACTIONS (1)
  - THROMBOCYTOPENIA [None]
